FAERS Safety Report 7508995-4 (Version None)
Quarter: 2011Q2

REPORT INFORMATION
  Report Type: 
  Country: None (occurrence: None)
  Receive Date: 20110519
  Receipt Date: 20110509
  Transmission Date: 20111010
  Serious: Yes (Hospitalization)
  Sender: FDA-Public Use
  Company Number: WAES 1003USA00528

PATIENT
  Age: 65 Year
  Sex: Female

DRUGS (11)
  1. NOVALGIN [Concomitant]
  2. BORTEZOMIB [Suspect]
     Indication: MULTIPLE MYELOMA
     Dosage: 1.3 MG/M[2]/IV, 2.3 MG/IV,1 MG/M[2]
     Route: 042
     Dates: start: 20100201
  3. BORTEZOMIB [Suspect]
     Indication: MULTIPLE MYELOMA
     Dosage: 1.3 MG/M[2]/IV, 2.3 MG/IV,1 MG/M[2]
     Route: 042
     Dates: start: 20100222, end: 20100409
  4. BORTEZOMIB [Suspect]
     Indication: MULTIPLE MYELOMA
     Dosage: 1.3 MG/M[2]/IV, 2.3 MG/IV,1 MG/M[2]
     Route: 042
     Dates: start: 20100426
  5. ACETYLCYSTEINE [Concomitant]
  6. ACYCLOVIR [Concomitant]
  7. PANTOPRAZOLE [Concomitant]
  8. CAP VORINOSTAT [Suspect]
     Indication: MULTIPLE MYELOMA
     Dosage: 400 MG/PO, 300 MG/DAILY/PO
     Route: 048
     Dates: start: 20100201
  9. CAP VORINOSTAT [Suspect]
     Indication: MULTIPLE MYELOMA
     Dosage: 400 MG/PO, 300 MG/DAILY/PO
     Route: 048
     Dates: start: 20100426
  10. CAP VORINOSTAT [Suspect]
     Indication: MULTIPLE MYELOMA
     Dosage: 400 MG/PO, 300 MG/DAILY/PO
     Route: 048
     Dates: start: 20100222, end: 20100305
  11. CAP VORINOSTAT [Suspect]
     Indication: MULTIPLE MYELOMA
     Dosage: 400 MG/PO, 300 MG/DAILY/PO
     Route: 048
     Dates: start: 20100315, end: 20100411

REACTIONS (22)
  - BLOOD SODIUM DECREASED [None]
  - OEDEMA PERIPHERAL [None]
  - THROMBOSIS [None]
  - RED BLOOD CELL COUNT DECREASED [None]
  - PYREXIA [None]
  - BLOOD GLUCOSE INCREASED [None]
  - BUNDLE BRANCH BLOCK RIGHT [None]
  - SINUSITIS [None]
  - PLATELET COUNT DECREASED [None]
  - GENERAL PHYSICAL CONDITION ABNORMAL [None]
  - HAEMOGLOBIN DECREASED [None]
  - HAEMATOCRIT DECREASED [None]
  - BLOOD LACTATE DEHYDROGENASE INCREASED [None]
  - BLOOD CALCIUM DECREASED [None]
  - BLOOD CREATINE PHOSPHOKINASE MB INCREASED [None]
  - CONJUNCTIVITIS [None]
  - UPPER RESPIRATORY TRACT INFECTION [None]
  - NUTRITIONAL CONDITION ABNORMAL [None]
  - DIARRHOEA [None]
  - ALANINE AMINOTRANSFERASE INCREASED [None]
  - QRS AXIS ABNORMAL [None]
  - INTERNATIONAL NORMALISED RATIO INCREASED [None]
